FAERS Safety Report 21219593 (Version 1)
Quarter: 2022Q3

REPORT INFORMATION
  Report Type: Report from Study
  Country: MX (occurrence: MX)
  Receive Date: 20220817
  Receipt Date: 20220817
  Transmission Date: 20221026
  Serious: Yes (Death)
  Sender: FDA-Public Use
  Company Number: MX-BRISTOL-MYERS SQUIBB COMPANY-2022-087544

PATIENT
  Age: 78 Year
  Weight: 50 kg

DRUGS (1)
  1. OPDIVO [Suspect]
     Active Substance: NIVOLUMAB
     Indication: Head and neck cancer
     Dosage: FREQUENCY- FORTNIGHTLY
     Route: 042
     Dates: start: 20210728, end: 20220325

REACTIONS (2)
  - Illness [Fatal]
  - Off label use [Unknown]

NARRATIVE: CASE EVENT DATE: 20220803
